FAERS Safety Report 4591580-4 (Version None)
Quarter: 2005Q1

REPORT INFORMATION
  Report Type: 
  Country: None (occurrence: None)
  Receive Date: 20050223
  Receipt Date: 20050211
  Transmission Date: 20050727
  Serious: Yes (Other)
  Sender: FDA-Public Use
  Company Number: 2005VX000158

PATIENT
  Age: 66 Year
  Sex: Male

DRUGS (13)
  1. MESTINON [Suspect]
     Indication: MYASTHENIA GRAVIS
     Dosage: 30 MG; 3 TIMES A DAY; ORAL
     Route: 048
     Dates: start: 20040701, end: 20041201
  2. PREDNISOLONE [Suspect]
     Dosage: 2.5 MG; WEEKLY
  3. AMARYL [Concomitant]
  4. PREDNISOLONE [Concomitant]
  5. METFORMIN [Concomitant]
  6. ATENOLOL [Concomitant]
  7. CHLORTHIAZIDE TAB [Concomitant]
  8. GLIPIZIDE [Concomitant]
  9. MULTI-VITAMINS [Concomitant]
  10. INSULIN [Concomitant]
  11. AMLODIPINE [Concomitant]
  12. ATENOLOL [Concomitant]
  13. CALCIUM GLUCONATE [Concomitant]

REACTIONS (11)
  - DYSARTHRIA [None]
  - DYSPHAGIA [None]
  - HYPERHIDROSIS [None]
  - MUSCLE ATROPHY [None]
  - MUSCLE CONTRACTIONS INVOLUNTARY [None]
  - MUSCLE SPASMS [None]
  - MUSCLE TWITCHING [None]
  - MYASTHENIA GRAVIS [None]
  - RENAL CYST [None]
  - TENSILON TEST ABNORMAL [None]
  - WEIGHT DECREASED [None]
